FAERS Safety Report 8107506-2 (Version None)
Quarter: 2012Q1

REPORT INFORMATION
  Report Type: 
  Country: None (occurrence: None)
  Receive Date: 20120202
  Receipt Date: 20120124
  Transmission Date: 20120608
  Serious: Yes (Other)
  Sender: FDA-Public Use
  Company Number: NL-ROCHE-1033359

PATIENT
  Sex: Female

DRUGS (5)
  1. OMEPRAZOLE [Suspect]
     Indication: PRODUCT USED FOR UNKNOWN INDICATION
  2. DICLOFENAC [Suspect]
     Indication: PRODUCT USED FOR UNKNOWN INDICATION
  3. DOXYCYCLINE [Suspect]
     Indication: NASOPHARYNGITIS
     Dosage: ON DAY 1
  4. DOXYCYCLINE [Suspect]
     Dosage: DAILY
  5. NAPROXEN SODIUM [Suspect]
     Indication: CHEST PAIN

REACTIONS (1)
  - SWOLLEN TONGUE [None]
